FAERS Safety Report 12570270 (Version 1)
Quarter: 2016Q3

REPORT INFORMATION
  Report Type: Spontaneous
  Country: US (occurrence: US)
  Receive Date: 20160719
  Receipt Date: 20160719
  Transmission Date: 20161109
  Serious: No
  Sender: FDA-Public Use
  Company Number: US-PSKUSFDA-2015-US-0186

PATIENT
  Age: 68 Year
  Sex: Male
  Weight: 72.58 kg

DRUGS (2)
  1. ZOMETA [Concomitant]
     Active Substance: ZOLEDRONIC ACID
     Indication: PRODUCT USED FOR UNKNOWN INDICATION
  2. FARESTON [Suspect]
     Active Substance: TOREMIFENE CITRATE
     Indication: PROSTATE CANCER

REACTIONS (2)
  - Product use issue [Not Recovered/Not Resolved]
  - No adverse event [Unknown]
